FAERS Safety Report 5409075-4 (Version None)
Quarter: 2007Q3

REPORT INFORMATION
  Report Type: 
  Country: None (occurrence: None)
  Receive Date: 20070806
  Receipt Date: 20070713
  Transmission Date: 20080115
  Serious: Yes (Other)
  Sender: FDA-Public Use
  Company Number: 2217-270

PATIENT

DRUGS (1)
  1. TRIAMCINOLONE ACETONIDE [Suspect]
     Indication: EYE DISORDER
     Dosage: 4 MG ONCE EY

REACTIONS (1)
  - RETINAL ARTERY OCCLUSION [None]
